FAERS Safety Report 6453633-5 (Version None)
Quarter: 2009Q4

REPORT INFORMATION
  Report Type: 
  Country: None (occurrence: None)
  Receive Date: 20091124
  Receipt Date: 20091112
  Transmission Date: 20100525
  Serious: Yes (Hospitalization)
  Sender: FDA-Public Use
  Company Number: PHHY2009DK22343

PATIENT
  Sex: Female
  Weight: 53 kg

DRUGS (9)
  1. ACLASTA [Suspect]
     Indication: OSTEOPOROSIS
     Dosage: 5 MG ONCE YEARLY
     Route: 042
     Dates: start: 20081211, end: 20081211
  2. NEXIUM [Concomitant]
     Indication: BLOOD GASTRIN
     Dosage: 20 MG WHEN NEEDED
  3. COZAAR [Concomitant]
     Indication: HYPERTENSION
     Dosage: 25 MG, QD
  4. AMLODIPINE [Concomitant]
     Dosage: 5 MG, QD
  5. BUMEX [Concomitant]
     Indication: ARTERIOSCLEROSIS
     Dosage: 1 MG, QD
  6. SPIRIVA [Concomitant]
     Indication: CHRONIC OBSTRUCTIVE PULMONARY DISEASE
     Dosage: 18 UG, QD
  7. SPIROCORT [Concomitant]
     Indication: CHRONIC OBSTRUCTIVE PULMONARY DISEASE
     Dosage: 320 UG, BID
  8. VITAMIN D3 [Concomitant]
     Dosage: 100 UG, UNK
  9. THYCAPZOL [Concomitant]
     Dosage: 5 MG DAILY

REACTIONS (5)
  - ATRIAL FIBRILLATION [None]
  - DYSPNOEA [None]
  - PALPITATIONS [None]
  - PNEUMONIA [None]
  - PULMONARY OEDEMA [None]
